FAERS Safety Report 6111239-1 (Version None)
Quarter: 2009Q1

REPORT INFORMATION
  Report Type: 
  Country: None (occurrence: None)
  Receive Date: 20090311
  Receipt Date: 20090304
  Transmission Date: 20090719
  Serious: Yes (Hospitalization)
  Sender: FDA-Public Use
  Company Number: PHHY2009FR06282

PATIENT
  Age: 5 Year
  Sex: Male

DRUGS (6)
  1. EXJADE [Suspect]
     Dosage: 30 MG/KG, QD
     Dates: start: 20070730
  2. HYDREA [Suspect]
     Dosage: UNK
     Dates: start: 20080729
  3. NSAID'S [Suspect]
  4. ORACILLINE [Concomitant]
     Dosage: 1500000 IU/DAY
  5. FELDENE [Concomitant]
     Dosage: 5 MG PER DAY
  6. GRANION ZINC [Concomitant]

REACTIONS (7)
  - BIOPSY KIDNEY ABNORMAL [None]
  - BLOOD CREATININE INCREASED [None]
  - BLOOD UREA INCREASED [None]
  - HAEMODIALYSIS [None]
  - RENAL FAILURE [None]
  - RENAL PAPILLARY NECROSIS [None]
  - VOMITING [None]
